FAERS Safety Report 21136259 (Version 1)
Quarter: 2022Q3

REPORT INFORMATION
  Report Type: Spontaneous
  Country: FR (occurrence: FR)
  Receive Date: 20220727
  Receipt Date: 20220727
  Transmission Date: 20221026
  Serious: Yes (Other)
  Sender: FDA-Public Use
  Company Number: FR-MLMSERVICE-20220718-3669664-1

PATIENT
  Age: 31 Year
  Sex: Female

DRUGS (2)
  1. CISPLATIN [Suspect]
     Active Substance: CISPLATIN
     Indication: Squamous cell carcinoma of the cervix
     Dosage: CUMULATIVE DOSE: 3 CYCLICAL
  2. PACLITAXEL [Suspect]
     Active Substance: PACLITAXEL
     Indication: Squamous cell carcinoma of the cervix
     Dosage: CUMULATIVE DOSE: 3 CYCLICAL

REACTIONS (3)
  - Hepatic cytolysis [Unknown]
  - Uterine atrophy [Not Recovered/Not Resolved]
  - Off label use [Unknown]
